FAERS Safety Report 18623944 (Version 1)
Quarter: 2020Q4

REPORT INFORMATION
  Report Type: Other
  Country: US (occurrence: US)
  Receive Date: 20201216
  Receipt Date: 20201216
  Transmission Date: 20210114
  Serious: Yes (Other)
  Sender: FDA-Public Use
  Company Number: US-ROCHE-2733195

PATIENT
  Sex: Female

DRUGS (1)
  1. OCREVUS [Suspect]
     Active Substance: OCRELIZUMAB
     Indication: MULTIPLE SCLEROSIS
     Dosage: INITIAL INFUSION DATED: 04/APR/2018 FOLLOWED BY SUBSEQUENT 6 MONTH INFUSION ON 26/SEP/2018.?DATES OF
     Route: 065
     Dates: start: 20180321

REACTIONS (1)
  - Herpes zoster [Recovered/Resolved]
